FAERS Safety Report 6529773-9 (Version None)
Quarter: 2010Q1

REPORT INFORMATION
  Report Type: 
  Country: None (occurrence: None)
  Receive Date: 20100104
  Receipt Date: 20091218
  Transmission Date: 20100710
  Serious: Yes (Other)
  Sender: FDA-Public Use
  Company Number: 1000010346

PATIENT
  Age: 32 Year
  Sex: Female

DRUGS (5)
  1. LEXAPRO [Suspect]
     Indication: DEPRESSION
     Dosage: 10 MG, ORAL
     Route: 048
     Dates: start: 20091103
  2. SERDOLECT [Suspect]
     Indication: PSYCHOTIC DISORDER
     Dosage: 4 MG, ORAL 8 MG, ORAL
     Route: 048
     Dates: start: 20091025, end: 20091109
  3. SERDOLECT [Suspect]
     Indication: PSYCHOTIC DISORDER
     Dosage: 4 MG, ORAL 8 MG, ORAL
     Route: 048
     Dates: start: 20091110, end: 20091115
  4. PAROXETINE HCL [Concomitant]
  5. LOSEC [Concomitant]

REACTIONS (7)
  - BLOOD PRESSURE SYSTOLIC INCREASED [None]
  - BREAST MASS [None]
  - DIZZINESS [None]
  - FATIGUE [None]
  - GALACTORRHOEA [None]
  - HEART RATE INCREASED [None]
  - PALLOR [None]
